FAERS Safety Report 22343650 (Version 2)
Quarter: 2023Q2

REPORT INFORMATION
  Report Type: Spontaneous
  Country: JP (occurrence: JP)
  Receive Date: 20230519
  Receipt Date: 20230529
  Transmission Date: 20230722
  Serious: Yes (Other)
  Sender: FDA-Public Use
  Company Number: JP-SUN PHARMACEUTICAL INDUSTRIES LTD-2023R1-382090

PATIENT
  Age: 6 Year
  Sex: Female
  Weight: 22 kg

DRUGS (3)
  1. LACOSAMIDE [Suspect]
     Active Substance: LACOSAMIDE
     Indication: Partial seizures
     Dosage: 1.25 MILLIGRAM/KILOGRAM, DAILY
     Route: 065
  2. LACOSAMIDE [Suspect]
     Active Substance: LACOSAMIDE
     Dosage: 2.5 MILLIGRAM/KILOGRAM, DAILY
     Route: 065
  3. LACOSAMIDE [Suspect]
     Active Substance: LACOSAMIDE
     Dosage: 5 MILLIGRAM/KILOGRAM, DAILY
     Route: 065

REACTIONS (3)
  - Condition aggravated [Unknown]
  - Hyperthermia [Recovered/Resolved]
  - Mood swings [Unknown]
